FAERS Safety Report 6376819-7 (Version None)
Quarter: 2009Q3

REPORT INFORMATION
  Report Type: 
  Country: None (occurrence: None)
  Receive Date: 20090924
  Receipt Date: 20090924
  Transmission Date: 20100115
  Serious: No
  Sender: FDA-Public Use
  Company Number: None

PATIENT
  Age: 54 Year
  Sex: Female
  Weight: 83.9154 kg

DRUGS (1)
  1. AROMASIN [Suspect]
     Dosage: 25MG
     Dates: start: 20090611, end: 20090702

REACTIONS (1)
  - ARTHRALGIA [None]
